FAERS Safety Report 9885967 (Version 4)
Quarter: 2015Q3

REPORT INFORMATION
  Report Type: Report from Study
  Country: JP (occurrence: JP)
  Receive Date: 20140210
  Receipt Date: 20150918
  Transmission Date: 20151125
  Serious: Yes (Life-Threatening, Hospitalization, Other)
  Sender: FDA-Public Use
  Company Number: JP-GLAXOSMITHKLINE-B0921938A

PATIENT
  Age: 58 Year
  Sex: Male
  Weight: 62 kg

DRUGS (24)
  1. TAKEPRON [Suspect]
     Active Substance: LANSOPRAZOLE
     Indication: GASTRITIS PROPHYLAXIS
     Dosage: UNK
     Route: 048
     Dates: start: 20120522, end: 20130112
  2. FOSAMAC [Concomitant]
     Active Substance: ALENDRONATE SODIUM
     Indication: OSTEOPOROSIS PROPHYLAXIS
     Dosage: UNK
     Route: 048
  3. MUCOSOLVAN [Concomitant]
     Active Substance: AMBROXOL\CLENBUTEROL
     Indication: INFECTION PROPHYLAXIS
     Dosage: UNK
     Route: 048
     Dates: start: 20120922, end: 20130112
  4. NEXAVAR [Suspect]
     Active Substance: SORAFENIB
     Indication: PULMONARY ARTERIAL HYPERTENSION
     Route: 048
     Dates: start: 20120609, end: 20120628
  5. NEXAVAR [Suspect]
     Active Substance: SORAFENIB
     Indication: PULMONARY ARTERIAL HYPERTENSION
     Route: 048
     Dates: start: 20120705, end: 20120710
  6. METGLUCO [Suspect]
     Active Substance: METFORMIN HYDROCHLORIDE
     Route: 048
  7. PREDNISOLONE. [Concomitant]
     Active Substance: PREDNISOLONE
     Indication: PULMONARY VENO-OCCLUSIVE DISEASE
     Dosage: UNK
     Route: 048
  8. ALDACTONE A [Concomitant]
     Active Substance: SPIRONOLACTONE
     Route: 048
  9. FERROMIA [Concomitant]
     Active Substance: FERROUS CITRATE
     Route: 048
     Dates: start: 20120324, end: 20120419
  10. WARFARIN [Concomitant]
     Active Substance: WARFARIN
     Indication: THROMBOSIS PROPHYLAXIS
     Route: 048
  11. MYSLEE [Concomitant]
     Active Substance: ZOLPIDEM TARTRATE
     Indication: PROPHYLAXIS
     Dosage: UNK
     Route: 048
  12. AMBRISENTAN [Suspect]
     Active Substance: AMBRISENTAN
     Indication: PULMONARY ARTERIAL HYPERTENSION
     Dosage: 2.5 MG, QD
     Route: 048
     Dates: start: 20120112, end: 20120118
  13. ALOSITOL [Suspect]
     Active Substance: ALLOPURINOL
     Route: 048
  14. ADCIRCA [Concomitant]
     Active Substance: TADALAFIL
     Indication: PULMONARY ARTERIAL HYPERTENSION
     Route: 048
  15. ASPARA POTASSIUM [Concomitant]
     Active Substance: POTASSIUM ASPARTATE
     Indication: PROPHYLAXIS
     Route: 048
     Dates: start: 20120325
  16. AMBRISENTAN [Suspect]
     Active Substance: AMBRISENTAN
     Dosage: 7.5 MG, QD
     Route: 048
     Dates: start: 20120126, end: 20120201
  17. GLIVEC [Suspect]
     Active Substance: IMATINIB MESYLATE
     Route: 048
     Dates: start: 20120629, end: 20120705
  18. FLUITRAN [Concomitant]
     Active Substance: TRICHLORMETHIAZIDE
     Route: 048
  19. FUROSEMIDE. [Concomitant]
     Active Substance: FUROSEMIDE
     Route: 048
  20. AMBRISENTAN [Suspect]
     Active Substance: AMBRISENTAN
     Dosage: 10 MG, QD
     Route: 048
     Dates: start: 20120202
  21. CARELOAD LA [Concomitant]
     Indication: PULMONARY ARTERIAL HYPERTENSION
     Route: 048
     Dates: end: 20120419
  22. HALFDIGOXIN [Concomitant]
     Active Substance: DIGOXIN
     Indication: PROPHYLAXIS
     Route: 048
     Dates: start: 20120922
  23. EPOPROSTENOL SODIUM. [Suspect]
     Active Substance: EPOPROSTENOL SODIUM
     Indication: PULMONARY ARTERIAL HYPERTENSION
     Route: 042
     Dates: start: 20120315, end: 201206
  24. AMBRISENTAN [Suspect]
     Active Substance: AMBRISENTAN
     Dosage: 5 MG, QD
     Route: 048
     Dates: start: 20120119, end: 20120125

REACTIONS (12)
  - Right ventricular failure [Recovering/Resolving]
  - Hepatic function abnormal [Recovering/Resolving]
  - Platelet count decreased [Not Recovered/Not Resolved]
  - Pulmonary alveolar haemorrhage [Recovering/Resolving]
  - Right ventricular failure [Recovering/Resolving]
  - Right ventricular failure [Recovering/Resolving]
  - Pulmonary oedema [Recovering/Resolving]
  - Right ventricular failure [Recovering/Resolving]
  - Pulmonary veno-occlusive disease [Recovering/Resolving]
  - Anaemia [Not Recovered/Not Resolved]
  - Gastrointestinal haemorrhage [Not Recovered/Not Resolved]
  - Pneumonia [Recovering/Resolving]

NARRATIVE: CASE EVENT DATE: 20120308
